FAERS Safety Report 10260109 (Version 1)
Quarter: 2014Q2

REPORT INFORMATION
  Report Type: Spontaneous
  Country: HU (occurrence: HU)
  Receive Date: 20140625
  Receipt Date: 20140625
  Transmission Date: 20141212
  Serious: Yes (Other)
  Sender: FDA-Public Use
  Company Number: HU-ACTAVIS-2014-14139

PATIENT
  Age: 39 Year
  Sex: Female

DRUGS (3)
  1. INDAPAMIDE (UNKNOWN) [Suspect]
     Indication: HYPERTENSION
     Dosage: 1.5 MG, DAILY
     Route: 048
  2. BISOPROLOL [Concomitant]
     Indication: HYPERTENSION
     Dosage: 2.5 MG, BID
     Route: 065
  3. MEDAZEPAM [Concomitant]
     Indication: STRESS
     Dosage: 10 MG, BID
     Route: 065

REACTIONS (1)
  - Myopia [Recovered/Resolved]
